FAERS Safety Report 9797584 (Version 1)
Quarter: 2014Q1

REPORT INFORMATION
  Report Type: Report from Study
  Country: US (occurrence: US)
  Receive Date: 20140106
  Receipt Date: 20140106
  Transmission Date: 20141002
  Serious: Yes (Other)
  Sender: FDA-Public Use
  Company Number: US-ROCHE-1323842

PATIENT
  Age: 38 Year
  Sex: Female

DRUGS (10)
  1. LUCENTIS [Suspect]
     Indication: PRESUMED OCULAR HISTOPLASMOSIS SYNDROME
     Route: 050
     Dates: start: 20110524
  2. LUCENTIS [Suspect]
     Indication: CHOROIDAL NEOVASCULARISATION
     Dosage: Q4WKS OS; Q10WKS OR PRN OD
     Route: 050
     Dates: start: 20110630
  3. LUCENTIS [Suspect]
     Indication: RETINITIS HISTOPLASMA
     Dosage: Q8WKS OR PRN
     Route: 050
     Dates: start: 20120221
  4. AVASTIN [Suspect]
     Indication: PRESUMED OCULAR HISTOPLASMOSIS SYNDROME
     Route: 050
     Dates: start: 2009
  5. AVASTIN [Suspect]
     Indication: CHOROIDAL NEOVASCULARISATION
  6. PHENYLEPHRINE [Concomitant]
     Route: 065
  7. TROPICAMIDE [Concomitant]
     Route: 065
  8. PATADAY [Concomitant]
     Indication: HYPERSENSITIVITY
     Dosage: PRN
     Route: 065
  9. LIDOCAINE/EPINEPHRINE [Concomitant]
     Route: 065
  10. BETADINE [Concomitant]
     Dosage: EYE LID PREP
     Route: 065

REACTIONS (12)
  - Ocular hyperaemia [Unknown]
  - Eye pruritus [Unknown]
  - Conjunctival hyperaemia [Unknown]
  - Foreign body sensation in eyes [Unknown]
  - Macular scar [Unknown]
  - Choroidal neovascularisation [Unknown]
  - Choroidal neovascularisation [Unknown]
  - Cataract [Unknown]
  - Retinal detachment [Recovered/Resolved]
  - Off label use [Unknown]
  - Off label use [Unknown]
  - Retinal scar [Unknown]
